FAERS Safety Report 25741316 (Version 1)
Quarter: 2025Q3

REPORT INFORMATION
  Report Type: Spontaneous
  Country: JP (occurrence: JP)
  Receive Date: 20250829
  Receipt Date: 20250829
  Transmission Date: 20251020
  Serious: Yes (Other)
  Sender: MERCK SHARP & DOHME LLC
  Company Number: JP-009507513-2323924

PATIENT
  Age: 5 Decade
  Sex: Male

DRUGS (5)
  1. KEYTRUDA [Suspect]
     Active Substance: PEMBROLIZUMAB
     Indication: Clear cell renal cell carcinoma
  2. KEYTRUDA [Suspect]
     Active Substance: PEMBROLIZUMAB
     Indication: Clear cell renal cell carcinoma
  3. LENVIMA [Suspect]
     Active Substance: LENVATINIB
     Indication: Clear cell renal cell carcinoma
     Route: 048
  4. LENVIMA [Suspect]
     Active Substance: LENVATINIB
     Indication: Clear cell renal cell carcinoma
     Dosage: 14 MG / DAY
     Route: 048
  5. LENVIMA [Suspect]
     Active Substance: LENVATINIB
     Indication: Clear cell renal cell carcinoma
     Dosage: 10 MG / DAY
     Route: 048

REACTIONS (9)
  - Nephrectomy [Unknown]
  - Palpitations [Unknown]
  - Therapy partial responder [Unknown]
  - Malaise [Unknown]
  - Diarrhoea [Unknown]
  - Pancreaticosplenectomy [Unknown]
  - Thyroidectomy [Unknown]
  - Nephrectomy [Unknown]
  - Adrenalectomy [Unknown]
